FAERS Safety Report 5859889-1 (Version None)
Quarter: 2008Q3

REPORT INFORMATION
  Report Type: 
  Country: None (occurrence: None)
  Receive Date: 20080827
  Receipt Date: 20080825
  Transmission Date: 20090109
  Serious: Yes (Other)
  Sender: FDA-Public Use
  Company Number: AR-BRISTOL-MYERS SQUIBB COMPANY-14310387

PATIENT
  Sex: Male

DRUGS (2)
  1. IRBESARTAN [Suspect]
     Indication: HYPERTENSION
     Route: 048
     Dates: start: 20080815, end: 20080816
  2. COAPROVEL TABS 300MG/ 25MG [Concomitant]
     Indication: HYPERTENSION
     Route: 048
     Dates: start: 20080801, end: 20080814

REACTIONS (2)
  - HYPERTENSION [None]
  - NERVOUSNESS [None]
